FAERS Safety Report 5487121-X (Version None)
Quarter: 2007Q4

REPORT INFORMATION
  Report Type: 
  Country: None (occurrence: None)
  Receive Date: 20071016
  Receipt Date: 20071009
  Transmission Date: 20080405
  Serious: Yes (Other)
  Sender: FDA-Public Use
  Company Number: US-GILEAD-2007-0013195

PATIENT
  Sex: Male

DRUGS (8)
  1. LETAIRIS [Suspect]
     Indication: PULMONARY HYPERTENSION
     Route: 048
     Dates: start: 20070821, end: 20070826
  2. REVATIO [Concomitant]
     Route: 048
  3. COUMADIN [Concomitant]
     Route: 048
  4. LASIX [Concomitant]
     Route: 048
  5. TOPROL-XL [Concomitant]
  6. COZAAR [Concomitant]
     Route: 048
  7. ALLOPURINOL [Concomitant]
     Route: 048
  8. COLCHICINE [Concomitant]
     Route: 048

REACTIONS (2)
  - HEADACHE [None]
  - OCULAR ICTERUS [None]
